FAERS Safety Report 22069439 (Version 2)
Quarter: 2023Q2

REPORT INFORMATION
  Report Type: Report from Study
  Country: CA (occurrence: CA)
  Receive Date: 20230307
  Receipt Date: 20230414
  Transmission Date: 20230721
  Serious: Yes (Life-Threatening, Hospitalization, Other)
  Sender: FDA-Public Use
  Company Number: CA-MYLANLABS-2023M1023462

PATIENT
  Sex: Male
  Weight: 87 kg

DRUGS (10)
  1. CLOZAPINE [Suspect]
     Active Substance: CLOZAPINE
     Indication: Neuroleptic malignant syndrome
     Dosage: UNK
     Route: 048
     Dates: start: 202301
  2. CLOZAPINE [Suspect]
     Active Substance: CLOZAPINE
     Indication: Schizophrenia
     Dosage: 125 MILLIGRAM, BID AM AND HS
     Route: 048
     Dates: start: 20230104, end: 20230224
  3. OLANZAPINE [Concomitant]
     Active Substance: OLANZAPINE
     Dosage: UNK
     Route: 065
  4. LOXAPINE [Concomitant]
     Active Substance: LOXAPINE
     Dosage: 20 MILLIGRAM, BID
     Route: 065
  5. CLONAZEPAM [Concomitant]
     Active Substance: CLONAZEPAM
     Dosage: 0.5 MILLIGRAM, BID
     Route: 065
  6. PANTOPRAZOLE [Concomitant]
     Active Substance: PANTOPRAZOLE
     Dosage: 40 MILLIGRAM, QD (AM)
     Route: 065
  7. LACTULOSE [Concomitant]
     Active Substance: LACTULOSE
     Dosage: 30 MILLILITER, BID (AM, HS)
     Route: 065
  8. BUPRENORPHINE\NALOXONE [Concomitant]
     Active Substance: BUPRENORPHINE\NALOXONE
     Dosage: 8 MILLIGRAM, 2 MILLIGRAM QD (AM)
     Route: 048
  9. POLYETHYLENE GLYCOL 3350 [Concomitant]
     Active Substance: POLYETHYLENE GLYCOL 3350
     Dosage: 17 GRAM, QD (AM)
     Route: 065
  10. VITAMIN D [Concomitant]
     Active Substance: VITAMIN D NOS
     Dosage: 1000 UNIT, AM
     Route: 048

REACTIONS (14)
  - Blood creatine phosphokinase increased [Recovered/Resolved]
  - Blood pressure increased [Unknown]
  - Gait disturbance [Unknown]
  - Drooling [Unknown]
  - Muscle rigidity [Unknown]
  - Hyperhidrosis [Unknown]
  - Tachycardia [Unknown]
  - Neuroleptic malignant syndrome [Unknown]
  - Musculoskeletal stiffness [Unknown]
  - Tremor [Unknown]
  - Renal impairment [Unknown]
  - Confusional state [Unknown]
  - Liver function test increased [Recovering/Resolving]
  - Off label use [Unknown]
